FAERS Safety Report 7658475-0 (Version None)
Quarter: 2011Q3

REPORT INFORMATION
  Report Type: 
  Country: None (occurrence: None)
  Receive Date: 20110805
  Receipt Date: 20110728
  Transmission Date: 20111222
  Serious: Yes (Hospitalization, Other)
  Sender: FDA-Public Use
  Company Number: JP-JNJFOC-20110611638

PATIENT
  Age: 75 Year
  Sex: Female

DRUGS (7)
  1. OXINORM (OXYCODONE HYDROCHLORIDE) [Concomitant]
     Route: 048
  2. FENTANYL CITRATE [Suspect]
     Dosage: THE PATIENT WAS RESTARTED WITH HALF PATCH
     Route: 062
  3. STEROIDS NOS [Concomitant]
     Route: 065
  4. FENTANYL CITRATE [Suspect]
     Indication: CANCER PAIN
     Dosage: HALF PATCH APPLIED
     Route: 062
  5. OXINORM (OXYCODONE HYDROCHLORIDE) [Concomitant]
     Route: 048
  6. AMITRIPTYLINE HCL [Interacting]
     Indication: PRODUCT USED FOR UNKNOWN INDICATION
     Route: 048
  7. FENTANYL CITRATE [Suspect]
     Dosage: THE PATIENT WAS RESTARTED WITH HALF PATCH
     Route: 062

REACTIONS (5)
  - SOMNOLENCE [None]
  - DRUG INTERACTION [None]
  - WITHDRAWAL SYNDROME [None]
  - DELIRIUM [None]
  - WRONG TECHNIQUE IN DRUG USAGE PROCESS [None]
